FAERS Safety Report 7903168 (Version 3)
Quarter: 2014Q4

REPORT INFORMATION
  Report Type: Spontaneous
  Country: US (occurrence: US)
  Receive Date: 20110418
  Receipt Date: 20141211
  Transmission Date: 20150529
  Serious: Yes (Hospitalization, Other)
  Sender: FDA-Public Use
  Company Number: US-ASTRAZENECA-2010SE43000

PATIENT
  Age: 49 Year
  Sex: Female

DRUGS (3)
  1. TOPROL XL [Suspect]
     Active Substance: METOPROLOL SUCCINATE
     Route: 048
  2. NEXIUM [Suspect]
     Active Substance: ESOMEPRAZOLE MAGNESIUM
     Route: 048
  3. RHINOCORT AQUA [Suspect]
     Active Substance: BUDESONIDE
     Route: 045

REACTIONS (10)
  - Insomnia [Unknown]
  - Intentional product misuse [Unknown]
  - Drug dose omission [Unknown]
  - Hypertension [Unknown]
  - Odynophagia [Unknown]
  - Abdominal pain upper [Unknown]
  - Gastrooesophageal reflux disease [Unknown]
  - Uterine leiomyoma [Unknown]
  - Diabetes mellitus [Unknown]
  - Malaise [Unknown]
